FAERS Safety Report 5737937-7 (Version None)
Quarter: 2008Q2

REPORT INFORMATION
  Report Type: 
  Country: None (occurrence: None)
  Receive Date: 20080514
  Receipt Date: 20080507
  Transmission Date: 20081010
  Serious: Yes (Hospitalization)
  Sender: FDA-Public Use
  Company Number: GB-TEVA-171440ISR

PATIENT
  Sex: Male

DRUGS (15)
  1. LACTULOSE [Suspect]
  2. METOCLOPRAMIDE [Suspect]
  3. SODIUM CHLORIDE [Suspect]
     Dosage: 1L ONCE DAILY.
  4. CALCIUM CHLORIDE DIHYDRATE [Suspect]
     Dosage: 1L ONCE DAILY
  5. CLONAZEPAM [Suspect]
  6. FOLIC ACID [Suspect]
  7. ISOFLURANE [Suspect]
  8. LITHIUM CARBONATE [Suspect]
     Indication: POOR QUALITY SLEEP
  9. OLANZAPINE [Suspect]
  10. POTASSIUM CHLORIDE [Suspect]
     Dosage: 1L ONCE DAILY
  11. RANITIDINE [Suspect]
  12. SODIUM CITRATE [Suspect]
  13. SODIUM LACTATE [Suspect]
     Dosage: 1L ONCE DAILY
  14. SUXAMETHONIUM [Suspect]
  15. THIOPENTONE [Suspect]

REACTIONS (3)
  - DRUG EXPOSURE DURING PREGNANCY [None]
  - PREMATURE BABY [None]
  - THERAPEUTIC AGENT TOXICITY [None]
